FAERS Safety Report 19426166 (Version 1)
Quarter: 2021Q2

REPORT INFORMATION
  Report Type: Spontaneous
  Country: IE (occurrence: IE)
  Receive Date: 20210617
  Receipt Date: 20210617
  Transmission Date: 20210717
  Serious: Yes (Other)
  Sender: FDA-Public Use
  Company Number: IE-TEVA-2021-IE-1924455

PATIENT
  Age: 57 Year
  Sex: Male

DRUGS (6)
  1. HYDROXYCHLOROQUINE [Suspect]
     Active Substance: HYDROXYCHLOROQUINE
     Indication: COVID-19 PNEUMONIA
     Route: 065
     Dates: start: 2020
  2. METFORMIN/SITAGLIPTIN [Concomitant]
     Active Substance: METFORMIN\SITAGLIPTIN
     Indication: KETOSIS-PRONE DIABETES MELLITUS
     Route: 065
  3. GLICLAZIDE [Suspect]
     Active Substance: GLICLAZIDE
     Indication: KETOSIS-PRONE DIABETES MELLITUS
     Route: 065
     Dates: start: 2020, end: 2020
  4. BASAL BOLUS INSULIN [Concomitant]
     Indication: KETOSIS-PRONE DIABETES MELLITUS
     Dosage: BASAL BOLUS INSULIN
     Route: 065
     Dates: start: 2020
  5. CEFTRIAXONE. [Suspect]
     Active Substance: CEFTRIAXONE
     Indication: COVID-19 PNEUMONIA
     Route: 065
     Dates: start: 2020
  6. AZITHROMYCIN ANHYDROUS. [Suspect]
     Active Substance: AZITHROMYCIN ANHYDROUS
     Indication: COVID-19 PNEUMONIA
     Route: 065
     Dates: start: 2020

REACTIONS (4)
  - Unmasking of previously unidentified disease [Unknown]
  - Off label use [Unknown]
  - Glucose-6-phosphate dehydrogenase deficiency [Unknown]
  - Haemolytic anaemia [Recovered/Resolved]

NARRATIVE: CASE EVENT DATE: 2020
